FAERS Safety Report 11181053 (Version 1)
Quarter: 2015Q2

REPORT INFORMATION
  Report Type: Spontaneous
  Country: US (occurrence: None)
  Receive Date: 20150610
  Receipt Date: 20150610
  Transmission Date: 20150821
  Serious: Yes (Other)
  Sender: FDA-Public Use
  Company Number: None

PATIENT
  Age: 58 Year
  Sex: Female
  Weight: 58.97 kg

DRUGS (3)
  1. LIALDA [Suspect]
     Active Substance: MESALAMINE
     Indication: COLITIS ULCERATIVE
     Route: 048
     Dates: start: 20150525, end: 20150601
  2. CALCIUM + VITAMIN D [Concomitant]
     Active Substance: CALCIUM\VITAMIN D
  3. PESSARY [Concomitant]

REACTIONS (4)
  - Vision blurred [None]
  - Gastrointestinal pain [None]
  - Diarrhoea haemorrhagic [None]
  - Musculoskeletal stiffness [None]

NARRATIVE: CASE EVENT DATE: 20150525
